FAERS Safety Report 18600332 (Version 1)
Quarter: 2020Q4

REPORT INFORMATION
  Report Type: Spontaneous
  Country: US (occurrence: US)
  Receive Date: 20201209
  Receipt Date: 20201209
  Transmission Date: 20210114
  Serious: No
  Sender: FDA-Public Use
  Company Number: None

PATIENT
  Age: 52 Year
  Sex: Female

DRUGS (1)
  1. CIMZIA [Suspect]
     Active Substance: CERTOLIZUMAB PEGOL
     Indication: RHEUMATOID ARTHRITIS
     Route: 058
     Dates: start: 20201020

REACTIONS (7)
  - Headache [None]
  - Skin wound [None]
  - Skin disorder [None]
  - Rash [None]
  - Scab [None]
  - Blister [None]
  - Feeling abnormal [None]

NARRATIVE: CASE EVENT DATE: 20201209
